FAERS Safety Report 19118266 (Version 1)
Quarter: 2021Q2

REPORT INFORMATION
  Report Type: Report from Study
  Country: JP (occurrence: JP)
  Receive Date: 20210410
  Receipt Date: 20210410
  Transmission Date: 20210717
  Serious: Yes (Other)
  Sender: FDA-Public Use
  Company Number: JP-TAKEDA-2021TUS021865

PATIENT
  Age: 8 Year
  Sex: Male

DRUGS (4)
  1. LULLAN [Concomitant]
     Active Substance: PEROSPIRONE HYDROCHLORIDE
     Indication: ATTENTION DEFICIT HYPERACTIVITY DISORDER
     Dosage: 8 MILLIGRAM, QD
     Route: 065
  2. DEPAKENE?R [Concomitant]
     Active Substance: VALPROATE SODIUM
     Indication: ATTENTION DEFICIT HYPERACTIVITY DISORDER
     Dosage: 200 MILLIGRAM, QD
     Route: 065
  3. INTUNIV [Suspect]
     Active Substance: GUANFACINE HYDROCHLORIDE
     Indication: ATTENTION DEFICIT HYPERACTIVITY DISORDER
     Dosage: 1 MILLIGRAM, QD
     Route: 065
  4. 489 (LISDEXAMFETAMINE DIMESYLATE) [Suspect]
     Active Substance: LISDEXAMFETAMINE DIMESYLATE
     Indication: ATTENTION DEFICIT HYPERACTIVITY DISORDER
     Dosage: 30 MILLIGRAM, QD
     Route: 048
     Dates: start: 20210306, end: 20210319

REACTIONS (2)
  - Decreased appetite [Recovering/Resolving]
  - Anger [Recovering/Resolving]

NARRATIVE: CASE EVENT DATE: 20210306
